FAERS Safety Report 18720985 (Version 1)
Quarter: 2021Q1

REPORT INFORMATION
  Report Type: Spontaneous
  Country: US (occurrence: US)
  Receive Date: 20210108
  Receipt Date: 20210108
  Transmission Date: 20210419
  Serious: No
  Sender: FDA-Public Use
  Company Number: US-TEIKOKU PHARMA USA-TPU2020-00965

PATIENT
  Sex: Male

DRUGS (4)
  1. NAPROXEN. [Concomitant]
     Active Substance: NAPROXEN
  2. LAMICTIL 300MG XR [Concomitant]
  3. LIDODERM [Suspect]
     Active Substance: LIDOCAINE
     Indication: BACK PAIN
  4. LIDODERM [Suspect]
     Active Substance: LIDOCAINE
     Indication: TENDONITIS
     Route: 061
     Dates: start: 2012

REACTIONS (1)
  - Prescription drug used without a prescription [Recovered/Resolved]

NARRATIVE: CASE EVENT DATE: 2012
